FAERS Safety Report 11361983 (Version 1)
Quarter: 2015Q3

REPORT INFORMATION
  Report Type: Spontaneous
  Country: US (occurrence: US)
  Receive Date: 20150810
  Receipt Date: 20150810
  Transmission Date: 20151125
  Serious: Yes (Other)
  Sender: FDA-Public Use
  Company Number: US-JNJFOC-20150800165

PATIENT
  Sex: Male

DRUGS (1)
  1. HALDOL [Suspect]
     Active Substance: HALOPERIDOL
     Indication: PRODUCT USED FOR UNKNOWN INDICATION
     Route: 065

REACTIONS (8)
  - Angina pectoris [Unknown]
  - Abdominal pain upper [Unknown]
  - Aphasia [Unknown]
  - Akathisia [Unknown]
  - Headache [Unknown]
  - Blindness [Unknown]
  - Deafness [Unknown]
  - Pain in extremity [Unknown]
